FAERS Safety Report 16227088 (Version 1)
Quarter: 2019Q2

REPORT INFORMATION
  Report Type: Spontaneous
  Country: US (occurrence: US)
  Receive Date: 20190423
  Receipt Date: 20190423
  Transmission Date: 20190711
  Serious: Yes (Other)
  Sender: FDA-Public Use
  Company Number: US-TEVA-2018-US-972728

PATIENT
  Age: 47 Year
  Sex: Male

DRUGS (3)
  1. ETOPOSIDE. [Concomitant]
     Active Substance: ETOPOSIDE
     Indication: CUTANEOUS T-CELL LYMPHOMA STAGE III
     Dosage: ON DAYS 1 TO 3
     Route: 065
  2. CARBOPLATIN. [Concomitant]
     Active Substance: CARBOPLATIN
     Indication: CUTANEOUS T-CELL LYMPHOMA STAGE III
     Dosage: AN AREA UNDER CURVE (AUC) OF 5 ON DAY 3.
     Route: 065
  3. IFOSFAMIDE. [Suspect]
     Active Substance: IFOSFAMIDE
     Indication: CUTANEOUS T-CELL LYMPHOMA STAGE III
     Dosage: 5000 MG/M 2 INFUSION; INFUSED OVER 24 HOURS ON DAY 2.
     Route: 050

REACTIONS (1)
  - Metabolic encephalopathy [Recovered/Resolved]
